FAERS Safety Report 12700590 (Version 1)
Quarter: 2016Q3

REPORT INFORMATION
  Report Type: Report from Study
  Country: FR (occurrence: FR)
  Receive Date: 20160830
  Receipt Date: 20160830
  Transmission Date: 20161109
  Serious: Yes (Hospitalization)
  Sender: FDA-Public Use
  Company Number: FR-ROCHE-1820939

PATIENT
  Sex: Female

DRUGS (1)
  1. RITUXIMAB [Suspect]
     Active Substance: RITUXIMAB
     Indication: RHEUMATOID ARTHRITIS
     Dosage: LAST DOCUMENTED ADMINISTRATION OF RITUXIMAB WAS IN JUN/2010
     Route: 041
     Dates: start: 20080412

REACTIONS (6)
  - Bone cyst [Recovered/Resolved]
  - Infusion related reaction [Recovered/Resolved]
  - Paraplegia [Recovered/Resolved]
  - Depression [Unknown]
  - Iron deficiency anaemia [Recovered/Resolved]
  - Infusion related reaction [Unknown]

NARRATIVE: CASE EVENT DATE: 200807
